FAERS Safety Report 4616289-X (Version None)
Quarter: 2005Q1

REPORT INFORMATION
  Report Type: 
  Country: None (occurrence: None)
  Receive Date: 20050321
  Receipt Date: 20050308
  Transmission Date: 20050727
  Serious: Yes (Other)
  Sender: FDA-Public Use
  Company Number: 2003122674

PATIENT

DRUGS (8)
  1. DIFLUCAN [Suspect]
     Indication: VAGINAL MYCOSIS
     Dosage: 150 MG, 1 IN 3 D, ORAL
     Route: 048
  2. NYSTATIN [Suspect]
     Indication: CANDIDIASIS
  3. LORAZEPAM [Concomitant]
  4. RANITDINE HYDROCHLORIDE (RANITIDINE HYDROCHLORIDE) [Concomitant]
  5. MONTELUKAST SODIUM (MONTELUKAST SODIUM) [Concomitant]
  6. COMBIVENT [Concomitant]
  7. ORCIPRENALINE SULFATE (ORCIPRENALINE SULFATE) [Concomitant]
  8. IPRATROPIUM BROMIDE [Concomitant]

REACTIONS (9)
  - ANGER [None]
  - ASTHMA [None]
  - BLADDER DISCOMFORT [None]
  - BLOOD PRESSURE INCREASED [None]
  - CONDITION AGGRAVATED [None]
  - DYSURIA [None]
  - JARISCH-HERXHEIMER REACTION [None]
  - MALAISE [None]
  - SENSATION OF PRESSURE [None]
